FAERS Safety Report 8293489-1 (Version None)
Quarter: 2012Q2

REPORT INFORMATION
  Report Type: 
  Country: None (occurrence: None)
  Receive Date: 20120417
  Receipt Date: 20120406
  Transmission Date: 20120825
  Serious: Yes (Hospitalization)
  Sender: FDA-Public Use
  Company Number: IT-ELI_LILLY_AND_COMPANY-IT201203003942

PATIENT
  Sex: Male

DRUGS (4)
  1. ZOFRAN [Concomitant]
     Dosage: 8 MG, UNKNOWN
     Route: 042
     Dates: start: 20120105, end: 20120105
  2. ALIMTA [Suspect]
     Indication: LUNG ADENOCARCINOMA
     Dosage: 634 MG, QD
     Route: 042
     Dates: start: 20120105
  3. CISPLATIN [Concomitant]
     Dosage: 95 MG, UNKNOWN
     Route: 042
     Dates: start: 20120105
  4. DEXAMETHASONE [Concomitant]
     Indication: LUNG ADENOCARCINOMA
     Dosage: 20 MG, UNKNOWN
     Route: 042
     Dates: start: 20120105, end: 20120105

REACTIONS (2)
  - BRONCHOPNEUMONIA [None]
  - CHRONIC OBSTRUCTIVE PULMONARY DISEASE [None]
